FAERS Safety Report 4530449-8 (Version None)
Quarter: 2004Q4

REPORT INFORMATION
  Report Type: 
  Country: None (occurrence: None)
  Receive Date: 20041216
  Receipt Date: 20041216
  Transmission Date: 20050328
  Serious: Yes (Death)
  Sender: FDA-Public Use
  Company Number: None

PATIENT
  Sex: Male
  Weight: 88.5 kg

DRUGS (2)
  1. GEODON [Suspect]
     Indication: AGITATION
     Dosage: 60MG   BID  ORAL
     Route: 048
     Dates: start: 20041017, end: 20041021
  2. GEODON [Suspect]
     Dosage: 20MG  ONCE  INTRAMUSCU
     Route: 030
     Dates: start: 20041021, end: 20041021

REACTIONS (6)
  - AGITATION [None]
  - BLOOD PRESSURE DECREASED [None]
  - CARDIAC ARREST [None]
  - HYPERTHERMIA [None]
  - NEUROLEPTIC MALIGNANT SYNDROME [None]
  - VENTRICULAR TACHYCARDIA [None]
